FAERS Safety Report 13079734 (Version 4)
Quarter: 2017Q1

REPORT INFORMATION
  Report Type: Spontaneous
  Country: BR (occurrence: BR)
  Receive Date: 20170103
  Receipt Date: 20170214
  Transmission Date: 20170428
  Serious: Yes (Other)
  Sender: FDA-Public Use
  Company Number: BR-ROCHE-1874061

PATIENT
  Sex: Female

DRUGS (4)
  1. ZOLOFT [Concomitant]
     Active Substance: SERTRALINE HYDROCHLORIDE
  2. RIVOTRIL [Suspect]
     Active Substance: CLONAZEPAM
     Indication: PANIC DISORDER
     Route: 065
  3. RIVOTRIL [Suspect]
     Active Substance: CLONAZEPAM
     Route: 065
  4. RIVOTRIL [Suspect]
     Active Substance: CLONAZEPAM
     Route: 065

REACTIONS (17)
  - Sedation [Unknown]
  - Panic disorder [Unknown]
  - Tongue discomfort [Unknown]
  - Product taste abnormal [Unknown]
  - Hypoaesthesia oral [Unknown]
  - Memory impairment [Unknown]
  - Loss of control of legs [Unknown]
  - Weight decreased [Unknown]
  - Decreased appetite [Unknown]
  - Drug ineffective [Unknown]
  - Seizure [Unknown]
  - Crying [Unknown]
  - Tachycardia [Unknown]
  - Product dropper issue [Unknown]
  - Dyspnoea [Unknown]
  - Irritability [Unknown]
  - Malaise [Unknown]
